FAERS Safety Report 9617277 (Version 1)
Quarter: 2013Q4

REPORT INFORMATION
  Report Type: Spontaneous
  Country: FR (occurrence: FR)
  Receive Date: 20131011
  Receipt Date: 20131011
  Transmission Date: 20140711
  Serious: Yes (Hospitalization, Disabling, Other)
  Sender: FDA-Public Use
  Company Number: FR-ALLERGAN-1315687US

PATIENT
  Age: 45 Year
  Sex: Female

DRUGS (4)
  1. OZURDEX [Suspect]
     Indication: CHOROIDITIS
     Dosage: 0.7 MG, SINGLE
     Route: 031
     Dates: start: 20130603, end: 20130603
  2. CORTANCYL [Suspect]
     Indication: CHOROIDITIS
     Dosage: 30 MG, DAILY
     Dates: start: 20130611
  3. CORTANCYL [Suspect]
     Dosage: 35 MG, DAILY
     Dates: start: 20130315, end: 20130611
  4. THYROID HORMONES [Concomitant]
     Indication: AUTOIMMUNE THYROIDITIS

REACTIONS (4)
  - Retinal disorder [Unknown]
  - Visual field defect [Unknown]
  - Ocular hypertension [Recovered/Resolved with Sequelae]
  - Off label use [Unknown]
